FAERS Safety Report 9064825 (Version 2)
Quarter: 2013Q1

REPORT INFORMATION
  Report Type: Spontaneous
  Country: DE (occurrence: DE)
  Receive Date: 20130127
  Receipt Date: 20130211
  Transmission Date: 20140127
  Serious: Yes (Hospitalization, Other)
  Sender: FDA-Public Use
  Company Number: PHHY2013DE006023

PATIENT
  Age: 84 Year
  Sex: Female
  Weight: 75 kg

DRUGS (7)
  1. AFINITOR [Suspect]
     Indication: BREAST CANCER METASTATIC
     Dosage: 10 MG PER DAY
     Route: 048
     Dates: start: 20121205, end: 20121222
  2. DENOSUMAB [Concomitant]
     Indication: METASTASES TO BONE
     Dosage: 120 MG, UNK
     Route: 058
     Dates: start: 20120619
  3. EXEMESTAN [Concomitant]
     Indication: METASTASES TO BONE
     Dosage: 25 MG, UNK
     Route: 048
     Dates: start: 20120501
  4. TORASEMIDE [Concomitant]
     Dosage: 10 MG, UNK
     Route: 048
  5. ALLOPURINOL [Concomitant]
     Dosage: 300 MG, UNK
     Route: 048
  6. SIMVASTATIN [Concomitant]
     Indication: HYPERCHOLESTEROLAEMIA
     Dosage: 20 MG, UNK
     Route: 048
  7. ENAHEXAL [Concomitant]
     Dosage: 5 MG, UNK
     Route: 048

REACTIONS (2)
  - Sensory loss [Recovering/Resolving]
  - Paresis [Not Recovered/Not Resolved]
